FAERS Safety Report 17638046 (Version 2)
Quarter: 2020Q2

REPORT INFORMATION
  Report Type: Spontaneous
  Country: AR (occurrence: AR)
  Receive Date: 20200407
  Receipt Date: 20200513
  Transmission Date: 20200713
  Serious: Yes (Other)
  Sender: FDA-Public Use
  Company Number: AR-PFIZER INC-2020143385

PATIENT
  Age: 36 Year
  Sex: Female

DRUGS (1)
  1. TALZENNA [Suspect]
     Active Substance: TALAZOPARIB TOSYLATE
     Dosage: UNK

REACTIONS (5)
  - Pyrexia [Unknown]
  - Pain [Unknown]
  - General physical condition abnormal [Unknown]
  - Malaise [Unknown]
  - Pneumonia [Unknown]
